FAERS Safety Report 24848570 (Version 3)
Quarter: 2025Q2

REPORT INFORMATION
  Report Type: Report from Study
  Country: GB (occurrence: GB)
  Receive Date: 20250116
  Receipt Date: 20250407
  Transmission Date: 20250716
  Serious: Yes (Other)
  Sender: SANDOZ
  Company Number: GB-SANDOZ-SDZ2025GB001106

PATIENT
  Sex: Male

DRUGS (1)
  1. OMNITROPE [Suspect]
     Active Substance: SOMATROPIN
     Indication: Hyperpituitarism
     Dosage: 1.20 MG, QD  SUREPAL 10
     Route: 058
     Dates: start: 20241230

REACTIONS (10)
  - Hyperpituitarism [Unknown]
  - Condition aggravated [Unknown]
  - Fear of injection [Not Recovered/Not Resolved]
  - Anxiety [Not Recovered/Not Resolved]
  - Panic reaction [Unknown]
  - Panic attack [Unknown]
  - Injection site bruising [Unknown]
  - Injection site pain [Not Recovered/Not Resolved]
  - Product use complaint [Unknown]
  - Product use in unapproved indication [Unknown]
